FAERS Safety Report 16208389 (Version 1)
Quarter: 2019Q2

REPORT INFORMATION
  Report Type: Report from Study
  Country: US (occurrence: US)
  Receive Date: 20190417
  Receipt Date: 20190417
  Transmission Date: 20190711
  Serious: Yes (Death, Other)
  Sender: FDA-Public Use
  Company Number: US-PFIZER INC-2019154431

PATIENT

DRUGS (2)
  1. IRINOTECAN HCL [Suspect]
     Active Substance: IRINOTECAN HYDROCHLORIDE
     Indication: OESOPHAGEAL CARCINOMA
     Dosage: 160 MG/M2, CYCLIC (EVERY 21 DAYS)
  2. DOCETAXEL. [Suspect]
     Active Substance: DOCETAXEL
     Indication: OESOPHAGEAL CARCINOMA
     Dosage: 60 MG/M2, CYCLIC (EVERY 21 DAYS)

REACTIONS (2)
  - Neutropenia [Unknown]
  - Large intestine perforation [Fatal]
